FAERS Safety Report 25664921 (Version 1)
Quarter: 2025Q3

REPORT INFORMATION
  Report Type: Spontaneous
  Country: ID (occurrence: ID)
  Receive Date: 20250811
  Receipt Date: 20250811
  Transmission Date: 20251020
  Serious: Yes (Death, Other)
  Sender: PFIZER
  Company Number: ID-PFIZER INC-PV202500081768

PATIENT

DRUGS (2)
  1. PALBOCICLIB [Suspect]
     Active Substance: PALBOCICLIB
     Dates: start: 202002, end: 202408
  2. FULVESTRANT [Concomitant]
     Active Substance: FULVESTRANT
     Dates: start: 202002

REACTIONS (4)
  - Diabetes mellitus [Fatal]
  - Renal disorder [Fatal]
  - Metastases to central nervous system [Unknown]
  - Metastases to lung [Unknown]

NARRATIVE: CASE EVENT DATE: 20241001
